FAERS Safety Report 6823752-X (Version None)
Quarter: 2010Q3

REPORT INFORMATION
  Report Type: 
  Country: None (occurrence: None)
  Receive Date: 20100708
  Receipt Date: 20060905
  Transmission Date: 20110219
  Serious: Yes (Other)
  Sender: FDA-Public Use
  Company Number: US-PFIZER INC-2006109437

PATIENT
  Sex: Female
  Weight: 56.7 kg

DRUGS (5)
  1. CHANTIX [Suspect]
     Indication: SMOKING CESSATION THERAPY
     Route: 048
     Dates: start: 20060903, end: 20060905
  2. ALBUTEROL [Concomitant]
     Route: 055
  3. XANAX [Concomitant]
     Route: 048
  4. SOMA [Concomitant]
     Route: 048
  5. FIORICET [Concomitant]
     Route: 048

REACTIONS (1)
  - DYSPNOEA [None]
